FAERS Safety Report 4694637-2 (Version None)
Quarter: 2005Q2

REPORT INFORMATION
  Report Type: 
  Country: None (occurrence: None)
  Receive Date: 20050620
  Receipt Date: 20050610
  Transmission Date: 20051028
  Serious: Yes (Other)
  Sender: FDA-Public Use
  Company Number: PHBS2005JP08473

PATIENT
  Age: 38 Year
  Sex: Male

DRUGS (2)
  1. LAMISIL [Suspect]
     Route: 048
     Dates: start: 20040901, end: 20050301
  2. LAMISIL [Suspect]
     Dosage: UNK, UNK
     Route: 048
     Dates: start: 20050509, end: 20050609

REACTIONS (2)
  - LENTICULAR OPACITIES [None]
  - RETINAL DEGENERATION [None]
